FAERS Safety Report 5231201-0 (Version None)
Quarter: 2007Q1

REPORT INFORMATION
  Report Type: 
  Country: None (occurrence: None)
  Receive Date: 20070206
  Receipt Date: 20070122
  Transmission Date: 20070707
  Serious: Yes (Hospitalization)
  Sender: FDA-Public Use
  Company Number: US-AMGEN-KDL204449

PATIENT
  Sex: Female

DRUGS (18)
  1. ENBREL [Suspect]
     Indication: RHEUMATOID ARTHRITIS
     Route: 058
     Dates: start: 20051222, end: 20061001
  2. PLAQUENIL [Concomitant]
     Route: 048
     Dates: start: 19910101
  3. MINOCYCLINE HCL [Concomitant]
     Route: 048
     Dates: start: 20060601
  4. PREDNISONE [Concomitant]
  5. CELEBREX [Concomitant]
  6. BONIVA [Concomitant]
     Route: 048
  7. AVAPRO [Concomitant]
     Route: 048
  8. CALCITRIOL [Concomitant]
  9. CHLORTHALIDONE + CLONIDINE [Concomitant]
  10. HYDRALAZINE HYDROCHLORIDE [Concomitant]
  11. ADALAT [Concomitant]
     Route: 048
  12. METOPROLOL SUCCINATE [Concomitant]
     Route: 048
  13. HYDRALAZINE HYDROCHLORIDE [Concomitant]
  14. ALLEGRA [Concomitant]
     Route: 048
  15. ZOCOR [Concomitant]
     Route: 048
  16. SYNTHROID [Concomitant]
     Route: 048
  17. CALTRATE 600 [Concomitant]
     Route: 048
  18. VITAMIN B 1-6-12 [Concomitant]

REACTIONS (11)
  - CARDIAC FAILURE CONGESTIVE [None]
  - CHEST DISCOMFORT [None]
  - MALIGNANT HYPERTENSION [None]
  - MUSCULOSKELETAL STIFFNESS [None]
  - OEDEMA PERIPHERAL [None]
  - PAIN [None]
  - PERICARDIAL EFFUSION [None]
  - PLEURAL EFFUSION [None]
  - RESPIRATORY TRACT CONGESTION [None]
  - SYNOVITIS [None]
  - WEIGHT DECREASED [None]
